FAERS Safety Report 7591456-4 (Version None)
Quarter: 2011Q3

REPORT INFORMATION
  Report Type: 
  Country: None (occurrence: None)
  Receive Date: 20110701
  Receipt Date: 20110701
  Transmission Date: 20111222
  Serious: Yes (Other)
  Sender: FDA-Public Use
  Company Number: None

PATIENT
  Age: 42 Year
  Sex: Female
  Weight: 148.7798 kg

DRUGS (2)
  1. LEVAQUIN [Suspect]
     Indication: PNEUMONIA
     Dosage: 500 MG 1 X DAY PO
     Route: 048
     Dates: start: 20110625, end: 20110629
  2. LEVAQUIN [Suspect]
     Indication: BRONCHITIS
     Dosage: 500 MG 1 X DAY PO
     Route: 048
     Dates: start: 20110625, end: 20110629

REACTIONS (4)
  - CHROMATURIA [None]
  - NAUSEA [None]
  - HEADACHE [None]
  - PAIN IN EXTREMITY [None]
